FAERS Safety Report 3761426 (Version 9)
Quarter: 2018Q2

REPORT INFORMATION
  Report Type: Spontaneous
  Country: JP (occurrence: JP)
  Receive Date: 20020107
  Receipt Date: 20180415
  Transmission Date: 20180711
  Serious: Yes (Death, Hospitalization, Other)
  Sender: FDA-Public Use
  Company Number: PHBS2001JP13073

PATIENT
  Age: 49 Year
  Sex: Male
  Weight: 64 kg

DRUGS (11)
  1. HYDREA [Concomitant]
     Active Substance: HYDROXYUREA
     Dates: start: 20020415
  2. ENDOXAN [Concomitant]
     Active Substance: CYCLOPHOSPHAMIDE
     Indication: PRODUCT USED FOR UNKNOWN INDICATION
     Dosage: UNK
     Route: 065
     Dates: start: 20020503, end: 20020505
  3. HYDREA [Concomitant]
     Active Substance: HYDROXYUREA
     Indication: PRODUCT USED FOR UNKNOWN INDICATION
     Dosage: UNK
     Route: 065
     Dates: start: 20020116, end: 20020125
  4. GLIVEC [Suspect]
     Active Substance: IMATINIB MESYLATE
     Dosage: 200 MG, QD
     Route: 048
     Dates: start: 20020225, end: 20020308
  5. CYMERIN [Concomitant]
     Active Substance: RANIMUSTINE
     Indication: PRODUCT USED FOR UNKNOWN INDICATION
     Dosage: UNK
     Route: 065
     Dates: start: 20020420, end: 20020420
  6. GLIVEC [Suspect]
     Active Substance: IMATINIB MESYLATE
     Dosage: 200 MG, QD
     Route: 048
     Dates: start: 20020311, end: 20020325
  7. GASTROM [Concomitant]
     Active Substance: ECABET SODIUM
     Indication: PRODUCT USED FOR UNKNOWN INDICATION
     Dosage: UNK
     Route: 065
     Dates: start: 19980508
  8. GLIVEC [Suspect]
     Active Substance: IMATINIB MESYLATE
     Indication: CHRONIC MYELOID LEUKAEMIA
     Dosage: 300 MG, BID
     Route: 048
     Dates: start: 20011210, end: 20011226
  9. STARASID [Concomitant]
     Active Substance: CYTARABINE OCFOSFATE
     Indication: PRODUCT USED FOR UNKNOWN INDICATION
     Dosage: UNK
     Route: 065
     Dates: start: 20020404, end: 20020415
  10. GLIVEC [Suspect]
     Active Substance: IMATINIB MESYLATE
     Dosage: UNK
     Route: 048
     Dates: start: 20011210, end: 20011226
  11. PARAPLATIN [Concomitant]
     Active Substance: CARBOPLATIN
     Indication: PRODUCT USED FOR UNKNOWN INDICATION
     Dosage: UNK
     Route: 065
     Dates: start: 20020509, end: 20020511

REACTIONS (17)
  - Skin exfoliation [Recovering/Resolving]
  - Interstitial lung disease [Fatal]
  - Blood urea increased [Recovered/Resolved]
  - Pyrexia [Fatal]
  - Blood creatinine increased [Recovered/Resolved]
  - Dyspnoea exertional [Fatal]
  - Pneumonia [Fatal]
  - Atrial fibrillation [Recovered/Resolved]
  - Dermatitis exfoliative generalised [Recovered/Resolved]
  - Palpitations [Recovered/Resolved]
  - Lung infiltration [Fatal]
  - Rash [Recovering/Resolving]
  - Eczema [Recovering/Resolving]
  - Hypersensitivity [Fatal]
  - Hypoxia [Fatal]
  - Pulmonary fibrosis [Fatal]
  - Erythema [Recovering/Resolving]

NARRATIVE: CASE EVENT DATE: 20011222
